FAERS Safety Report 23053861 (Version 3)
Quarter: 2024Q2

REPORT INFORMATION
  Report Type: Spontaneous
  Country: US (occurrence: US)
  Receive Date: 20231011
  Receipt Date: 20240610
  Transmission Date: 20240716
  Serious: Yes (Hospitalization, Other)
  Sender: FDA-Public Use
  Company Number: US-ABBVIE-5440794

PATIENT
  Age: 23 Year
  Sex: Female

DRUGS (2)
  1. POLYMYXIN B SULFATE\TRIMETHOPRIM [Suspect]
     Active Substance: POLYMYXIN B SULFATE\TRIMETHOPRIM
     Indication: Conjunctivitis
     Route: 047
  2. DEXAMETHASONE\TOBRAMYCIN [Suspect]
     Active Substance: DEXAMETHASONE\TOBRAMYCIN
     Indication: Symblepharon
     Route: 031

REACTIONS (2)
  - Stevens-Johnson syndrome [Recovered/Resolved]
  - Off label use [Unknown]
